FAERS Safety Report 4828643-1 (Version None)
Quarter: 2005Q4

REPORT INFORMATION
  Report Type: 
  Country: None (occurrence: None)
  Receive Date: 20051014
  Receipt Date: 20050824
  Transmission Date: 20060501
  Serious: No
  Sender: FDA-Public Use
  Company Number: 2005SP000886

PATIENT
  Sex: Female
  Weight: 99.7913 kg

DRUGS (2)
  1. LUNESTA [Suspect]
     Indication: INSOMNIA
     Dosage: 1 MG; HS; ORAL
     Route: 048
     Dates: start: 20050421, end: 20050427
  2. GEODON [Concomitant]

REACTIONS (1)
  - DRUG ERUPTION [None]
